FAERS Safety Report 4756163-1 (Version None)
Quarter: 2005Q3

REPORT INFORMATION
  Report Type: 
  Country: None (occurrence: None)
  Receive Date: 20050829
  Receipt Date: 20050829
  Transmission Date: 20060218
  Serious: Yes (Other)
  Sender: FDA-Public Use
  Company Number: None

PATIENT
  Age: 54 Year
  Sex: Female
  Weight: 79.3795 kg

DRUGS (3)
  1. ATIVAN [Suspect]
     Indication: BASEDOW'S DISEASE
     Dosage: 2 MG   TWICE A DAY
     Dates: start: 19991201, end: 20020531
  2. ATIVAN [Suspect]
     Indication: INSOMNIA
     Dosage: 2 MG   TWICE A DAY
     Dates: start: 19991201, end: 20020531
  3. TAPAZOLE [Concomitant]

REACTIONS (12)
  - AGITATION [None]
  - BLOOD PRESSURE INCREASED [None]
  - DIFFICULTY IN WALKING [None]
  - DRUG DEPENDENCE [None]
  - DRUG EFFECT DECREASED [None]
  - FEELING ABNORMAL [None]
  - IMPAIRED WORK ABILITY [None]
  - INSOMNIA [None]
  - MALAISE [None]
  - PANIC ATTACK [None]
  - RENAL FAILURE [None]
  - WEIGHT DECREASED [None]
